FAERS Safety Report 9010587 (Version 1)
Quarter: 2013Q1

REPORT INFORMATION
  Report Type: Spontaneous
  Country: US (occurrence: US)
  Receive Date: 20130109
  Receipt Date: 20130109
  Transmission Date: 20140127
  Serious: Yes (Other)
  Sender: FDA-Public Use
  Company Number: US-JNJFOC-20130103024

PATIENT
  Sex: Female
  Weight: 92.08 kg

DRUGS (1)
  1. ORTHO EVRA [Suspect]
     Indication: CONTRACEPTION
     Dosage: BEGAN ABOUT 3 TO 4 YEARS AGO
     Route: 062

REACTIONS (8)
  - Chest pain [Recovered/Resolved]
  - Loss of consciousness [Recovered/Resolved]
  - Pulmonary embolism [Unknown]
  - Renal failure [Not Recovered/Not Resolved]
  - Pulmonary thrombosis [Not Recovered/Not Resolved]
  - Blood pressure [Unknown]
  - Adverse event [Unknown]
  - Blood cholesterol [Unknown]
